FAERS Safety Report 15640208 (Version 2)
Quarter: 2018Q4

REPORT INFORMATION
  Report Type: Spontaneous
  Country: US (occurrence: US)
  Receive Date: 20181120
  Receipt Date: 20181212
  Transmission Date: 20190205
  Serious: Yes (Other)
  Sender: FDA-Public Use
  Company Number: US-PFIZER INC-2018467124

PATIENT
  Age: 62 Year
  Sex: Male

DRUGS (7)
  1. NORTRIPTYLINE [Concomitant]
     Active Substance: NORTRIPTYLINE
     Dosage: 75 MG, 1X/DAY
     Dates: start: 20180926
  2. LYRICA [Suspect]
     Active Substance: PREGABALIN
     Dosage: 100 MG, 3X/DAY
     Route: 048
     Dates: start: 201809, end: 2018
  3. LYRICA [Suspect]
     Active Substance: PREGABALIN
     Dosage: 500 MG, DAILY (TAKE 5 CAPSULES A DAY OF THE 100 MG)
     Route: 048
     Dates: start: 2018, end: 2018
  4. DIAZEPAM. [Concomitant]
     Active Substance: DIAZEPAM
     Dosage: 10 MG, 2X/DAY
     Dates: start: 20000501
  5. LYRICA [Suspect]
     Active Substance: PREGABALIN
     Indication: NEUROPATHY PERIPHERAL
     Dosage: 50 MG, UNK (1 CAPSULE FOR 3 DAYS, THEN 2 CAPSULES FOR 3 DAYS, THEN 3 FOR THEN ON AFTER)
     Route: 048
     Dates: start: 20180926, end: 201809
  6. LYRICA [Suspect]
     Active Substance: PREGABALIN
     Dosage: 150 MG, 3X/DAY
     Route: 048
     Dates: start: 20181010
  7. QUETIAPINE. [Concomitant]
     Active Substance: QUETIAPINE
     Indication: SLEEP DISORDER
     Dosage: 450 MG, 1X/DAY (1X/EVE FOR SLEEP)
     Dates: start: 20160501

REACTIONS (11)
  - Product prescribing issue [Unknown]
  - Feeling abnormal [Recovered/Resolved]
  - Cardiovascular disorder [Recovered/Resolved]
  - Arrhythmia [Unknown]
  - Pharyngeal disorder [Unknown]
  - Dyspnoea [Recovered/Resolved]
  - Head discomfort [Recovered/Resolved]
  - Tremor [Unknown]
  - Incorrect dose administered [Unknown]
  - Anxiety [Recovered/Resolved]
  - Asthenia [Recovered/Resolved]

NARRATIVE: CASE EVENT DATE: 2018
